FAERS Safety Report 12353557 (Version 1)
Quarter: 2016Q2

REPORT INFORMATION
  Report Type: Spontaneous
  Country: JP (occurrence: JP)
  Receive Date: 20160511
  Receipt Date: 20160511
  Transmission Date: 20160815
  Serious: Yes (Life-Threatening, Disabling)
  Sender: FDA-Public Use
  Company Number: JP-HOSPIRA-3284104

PATIENT
  Age: 58 Year
  Sex: Male

DRUGS (13)
  1. FENTANYL CITRATE. [Concomitant]
     Active Substance: FENTANYL CITRATE
     Indication: ANALGESIC THERAPY
     Dosage: 3.4 MCG/HR
     Route: 008
     Dates: start: 20160426, end: 20160427
  2. ANAPEINE [Concomitant]
     Active Substance: ROPIVACAINE HYDROCHLORIDE
     Indication: ANALGESIC THERAPY
     Route: 008
     Dates: start: 20160426, end: 20160427
  3. ESLAX [Concomitant]
     Active Substance: ROCURONIUM BROMIDE
     Indication: HYPOTONIA
     Dosage: 80-200 MG
     Route: 042
     Dates: start: 20160426, end: 20160426
  4. NEOSYNESIN                         /00116302/ [Concomitant]
     Indication: VASOPRESSIVE THERAPY
     Route: 042
     Dates: start: 20160426, end: 20160426
  5. OXYGEN. [Concomitant]
     Active Substance: OXYGEN
     Indication: INDUCTION OF ANAESTHESIA
     Dates: start: 20160426, end: 20160426
  6. PRECEDEX [Suspect]
     Active Substance: DEXMEDETOMIDINE HYDROCHLORIDE
     Indication: SEDATION
     Dosage: 20 MCG/HR AT 5 ML/HR
     Route: 041
     Dates: start: 20160426
  7. PRECEDEX [Suspect]
     Active Substance: DEXMEDETOMIDINE HYDROCHLORIDE
     Indication: SEDATION
     Dosage: 12 MCG/HR AT 3 ML/HR
     Route: 041
     Dates: start: 20160426
  8. PRECEDEX [Suspect]
     Active Substance: DEXMEDETOMIDINE HYDROCHLORIDE
     Indication: SEDATION
     Dosage: 12 MCG/HR AT 3 ML/HR
     Route: 041
     Dates: start: 20160426
  9. ULTIVA [Concomitant]
     Active Substance: REMIFENTANIL HYDROCHLORIDE
     Indication: ANALGESIC THERAPY
     Route: 041
     Dates: start: 20160426, end: 20160426
  10. POPSCAINE [Concomitant]
     Active Substance: LEVOBUPIVACAINE HYDROCHLORIDE
     Indication: ANALGESIC THERAPY
     Dosage: 1.4 ML/HR
     Route: 008
     Dates: start: 20160426, end: 20160427
  11. DROLEPTAN [Concomitant]
     Active Substance: DROPERIDOL
     Indication: ANTIEMETIC SUPPORTIVE CARE
     Dosage: 0.03
     Route: 008
     Dates: start: 20160426, end: 20160427
  12. SEVOFLURANE. [Concomitant]
     Active Substance: SEVOFLURANE
     Indication: MAINTENANCE OF ANAESTHESIA
     Route: 055
     Dates: start: 20160426, end: 20160426
  13. DIPRIVAN [Concomitant]
     Active Substance: PROPOFOL
     Indication: INDUCTION AND MAINTENANCE OF ANAESTHESIA
     Route: 042
     Dates: start: 20160426, end: 20160426

REACTIONS (4)
  - Heart rate decreased [Unknown]
  - Cardio-respiratory arrest [Unknown]
  - Blood pressure decreased [Unknown]
  - Bradycardia [Unknown]

NARRATIVE: CASE EVENT DATE: 20160426
